FAERS Safety Report 9883638 (Version 3)
Quarter: 2014Q2

REPORT INFORMATION
  Report Type: Report from Study
  Country: FR (occurrence: FR)
  Receive Date: 20140210
  Receipt Date: 20140404
  Transmission Date: 20141212
  Serious: Yes (Hospitalization, Other)
  Sender: FDA-Public Use
  Company Number: FR-ROCHE-1345565

PATIENT
  Age: 69 Year
  Sex: Female
  Weight: 71 kg

DRUGS (9)
  1. RANIBIZUMAB [Suspect]
     Indication: AGE-RELATED MACULAR DEGENERATION
     Route: 050
     Dates: start: 20130624
  2. ALDACTONE (UNITED STATES) [Concomitant]
  3. LASILIX [Concomitant]
  4. PERINDOPRIL [Concomitant]
  5. CARVEDILOL [Concomitant]
  6. LANTUS [Concomitant]
  7. NOVORAPID [Concomitant]
  8. PREVISCAN (FLUINDIONE) [Concomitant]
  9. BRICANYL [Concomitant]

REACTIONS (2)
  - Fall [Unknown]
  - Femur fracture [Recovered/Resolved]
